FAERS Safety Report 25057144 (Version 1)
Quarter: 2025Q1

REPORT INFORMATION
  Report Type: Spontaneous
  Country: JP (occurrence: JP)
  Receive Date: 20250310
  Receipt Date: 20250310
  Transmission Date: 20250408
  Serious: Yes (Hospitalization)
  Sender: RIGEL PHARMACEUTICALS
  Company Number: JP-KISSEI-TL20250200_P_1

PATIENT
  Age: 81 Year
  Sex: Male

DRUGS (2)
  1. TAVALISSE [Suspect]
     Active Substance: FOSTAMATINIB
     Indication: Product used for unknown indication
     Dosage: 200 MG/DAY
     Route: 048
     Dates: start: 202412
  2. TAVALISSE [Suspect]
     Active Substance: FOSTAMATINIB
     Dosage: 300 MG/DAY
     Route: 048
     Dates: start: 20250207

REACTIONS (6)
  - Blood sodium decreased [Unknown]
  - Blood potassium decreased [Unknown]
  - Malaise [Unknown]
  - Decreased appetite [Recovered/Resolved]
  - Aplastic anaemia [Unknown]
  - Dehydration [Unknown]
